APPROVED DRUG PRODUCT: SODIUM POLYSTYRENE SULFONATE
Active Ingredient: SODIUM POLYSTYRENE SULFONATE
Strength: 453.6GM/BOT
Dosage Form/Route: POWDER;ORAL, RECTAL
Application: A088786 | Product #001
Applicant: PAI HOLDINGS LLC DBA PHARMACEUTICAL ASSOCIATES INC
Approved: Sep 11, 1984 | RLD: Yes | RS: No | Type: DISCN